FAERS Safety Report 21796594 (Version 1)
Quarter: 2022Q4

REPORT INFORMATION
  Report Type: Report from Study
  Country: US (occurrence: US)
  Receive Date: 20221229
  Receipt Date: 20221229
  Transmission Date: 20230113
  Serious: No
  Sender: FDA-Public Use
  Company Number: US-ACADIA PHARMACEUTICALS INC.-ACA-2022-PIM-004287

PATIENT
  Sex: Female

DRUGS (11)
  1. NUPLAZID [Suspect]
     Active Substance: PIMAVANSERIN TARTRATE
     Indication: Parkinson^s disease
     Dosage: 10 MILLIGRAM, QD
     Route: 048
     Dates: start: 20221009
  2. VITAMINS [Concomitant]
     Active Substance: VITAMINS
  3. AMLODIPINE [Concomitant]
     Active Substance: AMLODIPINE BESYLATE
  4. ARMODAFINIL [Concomitant]
     Active Substance: ARMODAFINIL
  5. ATORVASTATIN [Concomitant]
     Active Substance: ATORVASTATIN
  6. BRIMONIDINE [Concomitant]
     Active Substance: BRIMONIDINE TARTRATE
  7. DORZOLAMIDE [Concomitant]
     Active Substance: DORZOLAMIDE
  8. EXELON [Concomitant]
     Active Substance: RIVASTIGMINE TARTRATE
  9. NAMENDA [Concomitant]
     Active Substance: MEMANTINE HYDROCHLORIDE
  10. SPIRONOLACTONE [Concomitant]
     Active Substance: SPIRONOLACTONE
  11. VITAMIN D3 [Concomitant]
     Active Substance: CHOLECALCIFEROL

REACTIONS (2)
  - Palpitations [Recovered/Resolved]
  - Hypersensitivity [Recovered/Resolved]
